FAERS Safety Report 10745744 (Version 1)
Quarter: 2015Q1

REPORT INFORMATION
  Report Type: Spontaneous
  Country: US (occurrence: None)
  Receive Date: 20150127
  Receipt Date: 20150127
  Transmission Date: 20150721
  Serious: Yes (Other)
  Sender: FDA-Public Use
  Company Number: None

PATIENT
  Age: 53 Year
  Sex: Female
  Weight: 73.94 kg

DRUGS (1)
  1. RANITIDINE TABLETS [Suspect]
     Active Substance: RANITIDINE HYDROCHLORIDE
     Indication: GASTROOESOPHAGEAL REFLUX DISEASE
     Dosage: 1 PILL
     Route: 048
     Dates: start: 20150125

REACTIONS (3)
  - Dyspnoea [None]
  - Throat tightness [None]
  - Feeling abnormal [None]

NARRATIVE: CASE EVENT DATE: 20150125
